FAERS Safety Report 11289222 (Version 2)
Quarter: 2015Q3

REPORT INFORMATION
  Report Type: Spontaneous
  Country: US (occurrence: US)
  Receive Date: 20150721
  Receipt Date: 20150805
  Transmission Date: 20151125
  Serious: Yes (Other)
  Sender: FDA-Public Use
  Company Number: US-LPDUSPRD-20150552

PATIENT
  Age: 36 Year
  Sex: Female

DRUGS (1)
  1. VENOFER [Suspect]
     Active Substance: IRON SUCROSE
     Dosage: 200 MG IN 100 ML NACL QD X4
     Route: 041
     Dates: start: 20150602, end: 20150623

REACTIONS (3)
  - Skin discolouration [Unknown]
  - Skin discolouration [Unknown]
  - Extravasation [Unknown]

NARRATIVE: CASE EVENT DATE: 20150602
